FAERS Safety Report 4655933-8 (Version None)
Quarter: 2005Q2

REPORT INFORMATION
  Report Type: 
  Country: None (occurrence: None)
  Receive Date: 20050505
  Receipt Date: 20050418
  Transmission Date: 20051028
  Serious: Yes (Other)
  Sender: FDA-Public Use
  Company Number: GBS050417178

PATIENT
  Sex: Female

DRUGS (1)
  1. CYMBALTA [Suspect]
     Indication: FIBROMYALGIA
     Dates: start: 20050416, end: 20050416

REACTIONS (3)
  - CHOKING SENSATION [None]
  - SWOLLEN TONGUE [None]
  - TONGUE DISCOLOURATION [None]
